FAERS Safety Report 5966017-0 (Version None)
Quarter: 2008Q4

REPORT INFORMATION
  Report Type: 
  Country: None (occurrence: None)
  Receive Date: 20081119
  Receipt Date: 20080731
  Transmission Date: 20090506
  Serious: No
  Sender: FDA-Public Use
  Company Number: WAES 0808USA00086

PATIENT
  Age: 62 Year
  Sex: Female

DRUGS (4)
  1. JANUVIA [Suspect]
     Indication: DIABETES MELLITUS
     Dosage: 100 MG/DAILY/PO
     Route: 048
     Dates: start: 20070101, end: 20080718
  2. ALLEGRA [Concomitant]
  3. HYZAAR [Concomitant]
  4. SINGULAIR [Concomitant]

REACTIONS (2)
  - RASH [None]
  - URTICARIA [None]
